FAERS Safety Report 9492066 (Version 2)
Quarter: 2013Q3

REPORT INFORMATION
  Report Type: Spontaneous
  Country: DK (occurrence: JP)
  Receive Date: 20130830
  Receipt Date: 20130910
  Transmission Date: 20140515
  Serious: Yes (Hospitalization)
  Sender: FDA-Public Use
  Company Number: JP-FRI-1000048320

PATIENT
  Age: 33 Year
  Sex: Female

DRUGS (6)
  1. LEXAPRO [Suspect]
     Indication: DEPRESSION
     Dosage: 6 TABLETS
     Route: 048
  2. ISOCLINE [Concomitant]
     Dosage: 15 TABLETS
     Route: 048
  3. RAVONA [Concomitant]
     Dosage: 17 TABLETS
     Route: 048
  4. LOBU [Concomitant]
     Dosage: 2 TABLETS
     Route: 048
  5. DOMPERIDONE [Concomitant]
     Dosage: 8 TABLETS
     Route: 048
  6. LANSOPRAZOLE [Concomitant]
     Dosage: 4 TABLETS
     Route: 048

REACTIONS (2)
  - Altered state of consciousness [Recovered/Resolved]
  - Overdose [Recovered/Resolved]
